FAERS Safety Report 17296943 (Version 1)
Quarter: 2020Q1

REPORT INFORMATION
  Report Type: Spontaneous
  Country: FR (occurrence: FR)
  Receive Date: 20200122
  Receipt Date: 20200122
  Transmission Date: 20200409
  Serious: Yes (Hospitalization)
  Sender: FDA-Public Use
  Company Number: FR-ROCHE-2520111

PATIENT
  Age: 61 Year
  Sex: Female

DRUGS (6)
  1. VIRAFERONPEG [Suspect]
     Active Substance: PEGINTERFERON ALFA-2B
     Indication: HEPATITIS C
     Dosage: /MAR/2009 RECEIVED MOST RECENT DOSE
     Route: 065
     Dates: start: 200901
  2. REBETOL [Suspect]
     Active Substance: RIBAVIRIN
     Indication: HEPATITIS C
     Dosage: 15/JUN/2011, SHE RECEIVED MOST RECENT DOSE OF
     Route: 065
     Dates: start: 20091204
  3. INTERFERON [Suspect]
     Active Substance: INTERFERON
     Indication: PRODUCT USED FOR UNKNOWN INDICATION
     Dosage: 15/JUN/2011, SHE RECEIVED MOST RECENT DOSE
     Route: 065
     Dates: start: 20091204
  4. RIBAVIRIN. [Suspect]
     Active Substance: RIBAVIRIN
     Indication: HEPATITIS C
     Dosage: IN MAR/2009, SHE RECEIVED MOST RECENT DOSE OF  RIBAVIRIN.
     Route: 065
     Dates: start: 200901
  5. SOFOSBUVIR [Suspect]
     Active Substance: SOFOSBUVIR
     Indication: HEPATITIS C
     Dosage: 15/DEC/2014, RECEIVED MOST RECENT DOSE
     Route: 065
     Dates: start: 20140620
  6. DACLATASVIR. [Suspect]
     Active Substance: DACLATASVIR
     Indication: HEPATITIS C
     Dosage: ON 15/DEC/2014, SHE RECEIVED MOST RECENT DOSE OF
     Route: 065
     Dates: start: 20140620

REACTIONS (1)
  - Hepatocellular carcinoma [Recovered/Resolved]

NARRATIVE: CASE EVENT DATE: 20171103
